FAERS Safety Report 4813588-3 (Version None)
Quarter: 2005Q4

REPORT INFORMATION
  Report Type: 
  Country: None (occurrence: None)
  Receive Date: 20051028
  Receipt Date: 20050301
  Transmission Date: 20060501
  Serious: No
  Sender: FDA-Public Use
  Company Number: US-GLAXOSMITHKLINE-A0547771A

PATIENT
  Sex: Male

DRUGS (1)
  1. ADVAIR DISKUS 100/50 [Suspect]
     Indication: EMPHYSEMA
     Dosage: 100MCG TWICE PER DAY
     Route: 055
     Dates: start: 20050201

REACTIONS (3)
  - DRUG ADMINISTRATION ERROR [None]
  - SALIVARY GLAND ENLARGEMENT [None]
  - SIALOADENITIS [None]
